FAERS Safety Report 5911992-3 (Version None)
Quarter: 2008Q4

REPORT INFORMATION
  Report Type: 
  Country: None (occurrence: None)
  Receive Date: 20081008
  Receipt Date: 20081001
  Transmission Date: 20090506
  Serious: Yes (Other)
  Sender: FDA-Public Use
  Company Number: PHHY2008DE23165

PATIENT
  Sex: Female

DRUGS (2)
  1. TEGRETOL [Suspect]
  2. ASPIRIN [Concomitant]

REACTIONS (3)
  - BLOOD CORTISOL ABNORMAL [None]
  - CORTISOL FREE URINE INCREASED [None]
  - PITUITARY-DEPENDENT CUSHING'S SYNDROME [None]
